FAERS Safety Report 13170293 (Version 8)
Quarter: 2019Q1

REPORT INFORMATION
  Report Type: Report from Study
  Country: DE (occurrence: DE)
  Receive Date: 20170131
  Receipt Date: 20190325
  Transmission Date: 20190417
  Serious: Yes (Hospitalization, Other)
  Sender: FDA-Public Use
  Company Number: DE-BRISTOL-MYERS SQUIBB COMPANY-BMS-2015-052632

PATIENT
  Age: 41 Year
  Sex: Female

DRUGS (2)
  1. ABATACEPT [Suspect]
     Active Substance: ABATACEPT
     Indication: RHEUMATOID ARTHRITIS
     Dosage: 125 MG, QWK
     Route: 058
  2. METHOTREXATE. [Suspect]
     Active Substance: METHOTREXATE
     Indication: RHEUMATOID ARTHRITIS
     Dosage: 20 MG, QWK
     Route: 065

REACTIONS (10)
  - Medical device removal [Not Recovered/Not Resolved]
  - Knee operation [Recovered/Resolved]
  - Ovarian cyst ruptured [Recovered/Resolved]
  - Von Willebrand^s disease [Unknown]
  - Bursitis [Recovered/Resolved]
  - Sinusitis [Unknown]
  - Back pain [Not Recovered/Not Resolved]
  - Bursal operation [Recovered/Resolved]
  - Osteoarthritis [Recovered/Resolved]
  - Abdominal pain lower [Unknown]

NARRATIVE: CASE EVENT DATE: 201504
